FAERS Safety Report 5913002-0 (Version None)
Quarter: 2008Q4

REPORT INFORMATION
  Report Type: 
  Country: None (occurrence: None)
  Receive Date: 20081006
  Receipt Date: 20080925
  Transmission Date: 20090506
  Serious: Yes (Death)
  Sender: FDA-Public Use
  Company Number: CHPA2008US16119

PATIENT
  Age: 5 Month
  Sex: Male
  Weight: 6 kg

DRUGS (7)
  1. DEXTROMETHORPHAN HYDROBROMIDE [Suspect]
  2. PSEUDOEPHEDRINE HCL [Suspect]
  3. ACETAMINOPHEN [Suspect]
  4. EPHEDRINE SUL CAP [Suspect]
  5. METOCLOPRAMIDE [Suspect]
  6. CARBINOXAMINE MALEATE [Suspect]
  7. ANTIBIOTICS (NO INGREDIENTS/SUBSTANCES) [Suspect]

REACTIONS (4)
  - DRUG TOXICITY [None]
  - MIDDLE EAR EFFUSION [None]
  - PULMONARY CONGESTION [None]
  - UNRESPONSIVE TO STIMULI [None]
